FAERS Safety Report 9432267 (Version 1)
Quarter: 2013Q3

REPORT INFORMATION
  Report Type: Spontaneous
  Country: US (occurrence: None)
  Receive Date: 20130729
  Receipt Date: 20130729
  Transmission Date: 20140515
  Serious: Yes (Other)
  Sender: FDA-Public Use
  Company Number: SYM-2013-06706

PATIENT
  Sex: Female

DRUGS (1)
  1. APLENZIN [Suspect]
     Indication: PRODUCT USED FOR UNKNOWN INDICATION
     Dates: start: 20130710

REACTIONS (3)
  - Urticaria [None]
  - Throat tightness [None]
  - Dyspnoea [None]
